FAERS Safety Report 16400139 (Version 1)
Quarter: 2019Q2

REPORT INFORMATION
  Report Type: Spontaneous
  Country: US (occurrence: US)
  Receive Date: 20190606
  Receipt Date: 20190606
  Transmission Date: 20190711
  Serious: No
  Sender: FDA-Public Use
  Company Number: US-ALLERGAN-1909762US

PATIENT
  Sex: Male
  Weight: 75 kg

DRUGS (5)
  1. KYBELLA [Suspect]
     Active Substance: DEOXYCHOLIC ACID
     Indication: FAT TISSUE INCREASED
     Dosage: ACTUAL: 1 VIAL
     Route: 058
     Dates: start: 201809, end: 201809
  2. KYBELLA [Suspect]
     Active Substance: DEOXYCHOLIC ACID
     Dosage: ACTUAL: 1 VIAL
     Route: 058
  3. KYBELLA [Suspect]
     Active Substance: DEOXYCHOLIC ACID
     Dosage: ACTUAL: 2 VIALS
     Route: 058
     Dates: start: 201711, end: 201711
  4. KYBELLA [Suspect]
     Active Substance: DEOXYCHOLIC ACID
     Dosage: ACTUAL: 1 VIAL
     Route: 058
  5. KYBELLA [Suspect]
     Active Substance: DEOXYCHOLIC ACID
     Dosage: ACTUAL: 1 VIAL
     Route: 058

REACTIONS (1)
  - Injection site alopecia [Not Recovered/Not Resolved]
